FAERS Safety Report 6710141-1 (Version None)
Quarter: 2010Q2

REPORT INFORMATION
  Report Type: 
  Country: None (occurrence: None)
  Receive Date: 20100504
  Receipt Date: 20100426
  Transmission Date: 20101027
  Serious: Yes (Hospitalization)
  Sender: FDA-Public Use
  Company Number: GB-ELI_LILLY_AND_COMPANY-GB201004007210

PATIENT
  Sex: Male

DRUGS (6)
  1. BYETTA [Suspect]
     Dosage: 5 UG, UNKNOWN
     Route: 065
     Dates: start: 20100301
  2. METFORMIN HCL [Concomitant]
     Dosage: 500 MG, 2/D
     Route: 065
  3. GLICLAZIDE [Concomitant]
     Dosage: 80 MG, 2/D
     Route: 065
  4. BISOPROLOL FUMARATE [Concomitant]
     Dosage: UNK, UNKNOWN
     Route: 065
  5. FRUSEMIDE [Concomitant]
     Dosage: UNK, UNKNOWN
     Route: 065
  6. RAMIPRIL [Concomitant]
     Dosage: 10 MG, DAILY (1/D)
     Route: 065

REACTIONS (1)
  - PANCREATITIS ACUTE [None]
